FAERS Safety Report 22173227 (Version 1)
Quarter: 2023Q2

REPORT INFORMATION
  Report Type: Spontaneous
  Country: TR (occurrence: TR)
  Receive Date: 20230404
  Receipt Date: 20230404
  Transmission Date: 20230721
  Serious: Yes (Other)
  Sender: FDA-Public Use
  Company Number: TR-BAYER-2023A040229

PATIENT
  Age: 72 Year
  Sex: Male

DRUGS (1)
  1. SORAFENIB [Suspect]
     Active Substance: SORAFENIB
     Indication: Hepatocellular carcinoma
     Dosage: 200 MG, QD

REACTIONS (7)
  - Pancreatitis acute [None]
  - Amylase increased [None]
  - Lipase increased [None]
  - C-reactive protein increased [None]
  - Gamma-glutamyltransferase increased [None]
  - Abdominal pain [None]
  - Off label use [None]
